FAERS Safety Report 6411826-7 (Version None)
Quarter: 2009Q4

REPORT INFORMATION
  Report Type: 
  Country: None (occurrence: None)
  Receive Date: 20091020
  Receipt Date: 20091005
  Transmission Date: 20100525
  Serious: Yes (Other)
  Sender: FDA-Public Use
  Company Number: HA09-085-AE

PATIENT
  Age: 38 Year
  Sex: Female
  Weight: 70.3075 kg

DRUGS (1)
  1. IBUPROFEN          TABLETS, USP 200MG          (BROWN TABLETS) [Suspect]
     Indication: HEADACHE
     Dosage: 2 TABS BY MOUTH PRN
     Dates: start: 20090926, end: 20090927

REACTIONS (2)
  - HEART RATE INCREASED [None]
  - URINE AMPHETAMINE POSITIVE [None]
